FAERS Safety Report 12878881 (Version 1)
Quarter: 2016Q4

REPORT INFORMATION
  Report Type: Report from Study
  Country: CO (occurrence: CO)
  Receive Date: 20161024
  Receipt Date: 20161024
  Transmission Date: 20170207
  Serious: Yes (Death, Hospitalization, Other)
  Sender: FDA-Public Use
  Company Number: CO-ACTELION-A-US2016-144349

PATIENT
  Age: 43 Year
  Sex: Female

DRUGS (2)
  1. VENTAVIS [Suspect]
     Active Substance: ILOPROST
     Indication: PULMONARY HYPERTENSION
     Dosage: UNK
     Route: 055
     Dates: start: 20120330
  2. VENTAVIS [Suspect]
     Active Substance: ILOPROST
     Dosage: 3-4 TIMES DAILY
     Route: 055
     Dates: start: 20160104

REACTIONS (5)
  - Disease progression [Fatal]
  - Abdominal cavity drainage [Recovering/Resolving]
  - Renal disorder [Unknown]
  - Ascites [Recovering/Resolving]
  - Product use issue [Not Recovered/Not Resolved]

NARRATIVE: CASE EVENT DATE: 20161002
